FAERS Safety Report 10233219 (Version 1)
Quarter: 2014Q2

REPORT INFORMATION
  Report Type: Spontaneous
  Country: US (occurrence: US)
  Receive Date: 20140612
  Receipt Date: 20140612
  Transmission Date: 20141212
  Serious: No
  Sender: FDA-Public Use
  Company Number: US-PFIZER INC-2014157435

PATIENT
  Age: 76 Year
  Sex: Female
  Weight: 47.17 kg

DRUGS (9)
  1. LYRICA [Suspect]
     Indication: FIBROMYALGIA
     Dosage: 50 MG, 1X/DAY
     Route: 048
     Dates: start: 20140524
  2. ASPIRIN [Concomitant]
     Dosage: 325 MG, UNK
  3. RANITIDINE [Concomitant]
     Dosage: 150 MG, 2X/DAY
  4. DIAZEPAM [Concomitant]
     Dosage: 2 MG, AS NEEDED
  5. LOTREL [Concomitant]
     Dosage: 2.5/10 MG
  6. ACETAMINOPHEN [Concomitant]
     Dosage: 500 MG, 4X/DAY
  7. VITAMIN B [Concomitant]
     Dosage: 500 MG, UNK
  8. MIRTAZAPINE [Concomitant]
     Dosage: 15 MG, 1X/DAY
  9. BUTRANS [Concomitant]
     Dosage: 5 UG, WEEKLY

REACTIONS (3)
  - Hypoacusis [Unknown]
  - Depressed mood [Unknown]
  - Intentional product misuse [Unknown]
